FAERS Safety Report 4867703-6 (Version None)
Quarter: 2005Q4

REPORT INFORMATION
  Report Type: 
  Country: None (occurrence: None)
  Receive Date: 20051228
  Receipt Date: 20051214
  Transmission Date: 20060501
  Serious: Yes (Other)
  Sender: FDA-Public Use
  Company Number: US-JNJFOC-20051003976

PATIENT
  Sex: Female
  Weight: 54.43 kg

DRUGS (12)
  1. REMICADE [Suspect]
     Route: 042
  2. REMICADE [Suspect]
     Indication: RHEUMATOID ARTHRITIS
     Route: 042
  3. METHOTREXATE [Concomitant]
     Dosage: 12.5 TO 20 MG WEEKLY
  4. PLAQUENIL [Concomitant]
  5. MOBIC [Concomitant]
  6. SYNTHROID [Concomitant]
  7. FOLIC ACID [Concomitant]
  8. ZYRTEC [Concomitant]
  9. PREDNISONE 50MG TAB [Concomitant]
     Route: 048
  10. AVISTA [Concomitant]
  11. TENORMIN [Concomitant]
  12. ZOCOR [Concomitant]

REACTIONS (4)
  - CARDIOMYOPATHY [None]
  - PERICARDIAL EFFUSION [None]
  - VENTRICULAR DYSFUNCTION [None]
  - WEIGHT DECREASED [None]
